FAERS Safety Report 23214505 (Version 2)
Quarter: 2023Q4

REPORT INFORMATION
  Report Type: Report from Study
  Country: SE (occurrence: SE)
  Receive Date: 20231121
  Receipt Date: 20231129
  Transmission Date: 20240109
  Serious: Yes (Other)
  Sender: FDA-Public Use
  Company Number: SE-PFIZER INC-PV202300184595

PATIENT
  Sex: Female

DRUGS (3)
  1. METHOTREXATE SODIUM [Suspect]
     Active Substance: METHOTREXATE SODIUM
     Indication: Pemphigoid
     Dosage: 5 MG, WEEKLY
  2. FOLIC ACID [Concomitant]
     Active Substance: FOLIC ACID
     Indication: Pemphigoid
     Dosage: 5 MG, 1 TABLET REMAINING 6 DAYS
  3. DIPROLENE [Concomitant]
     Active Substance: BETAMETHASONE DIPROPIONATE
     Indication: Pemphigoid
     Dosage: UNK, 2X/DAY
     Route: 061

REACTIONS (1)
  - Alveolitis [Recovering/Resolving]
